FAERS Safety Report 8567489 (Version 5)
Quarter: 2013Q1

REPORT INFORMATION
  Report Type: Spontaneous
  Country: US (occurrence: US)
  Receive Date: 20120517
  Receipt Date: 20130305
  Transmission Date: 20140127
  Serious: Yes (Other)
  Sender: FDA-Public Use
  Company Number: US-ABBOTT-12P-163-0935842-00

PATIENT
  Sex: Female
  Weight: 53 kg

DRUGS (3)
  1. HUMIRA 40 MG/ 0.8 ML PRE-FILLED SYRINGE [Suspect]
     Indication: CROHN^S DISEASE
     Dates: start: 20100315
  2. INFLIXIMAB [Suspect]
     Indication: CROHN^S DISEASE
     Dates: start: 200901, end: 200904
  3. 6-MP [Concomitant]
     Indication: PRODUCT USED FOR UNKNOWN INDICATION
     Dates: start: 201001, end: 201002

REACTIONS (2)
  - Adenocarcinoma [Unknown]
  - Salivary gland cancer [Unknown]
